FAERS Safety Report 21610472 (Version 1)
Quarter: 2022Q4

REPORT INFORMATION
  Report Type: Spontaneous
  Country: AU (occurrence: None)
  Receive Date: 20221117
  Receipt Date: 20221117
  Transmission Date: 20230113
  Serious: Yes (Disabling)
  Sender: FDA-Public Use
  Company Number: 2022A381661

PATIENT
  Age: 48 Year
  Sex: Female

DRUGS (14)
  1. QUETIAPINE [Suspect]
     Active Substance: QUETIAPINE
     Indication: Anxiety
     Dosage: 25 MG, 3 TIMES NIGHTLY
     Route: 065
     Dates: start: 201811
  2. ZOLMITRIPTAN [Suspect]
     Active Substance: ZOLMITRIPTAN
     Indication: Migraine
     Dosage: 2.5 MG, AS REQUIRED
     Route: 065
     Dates: start: 2019
  3. AMITRIPTYLINE [Suspect]
     Active Substance: AMITRIPTYLINE
     Indication: Migraine
     Dosage: 25MILLIGRAM PER DAY, NIGHTLY
     Route: 065
     Dates: start: 20220120
  4. BUTYLSCOPOLAMINE BROMIDE [Suspect]
     Active Substance: BUTYLSCOPOLAMINE BROMIDE
     Indication: Irritable bowel syndrome
     Dosage: ABOUT 11 YEARS
     Route: 065
  5. CITALOPRAM [Suspect]
     Active Substance: CITALOPRAM HYDROBROMIDE
     Indication: Depression
     Dosage: 40MILLIGRAM PER DAY, NIGHTLY
     Route: 048
     Dates: start: 201811
  6. SIMETHICONE (DIMETHICONE) [Suspect]
     Active Substance: DIMETHICONE
     Indication: Irritable bowel syndrome
     Dosage: AS REQUIRED, ABOUT 11 YEARS
     Route: 065
  7. ESTRADIOL [Suspect]
     Active Substance: ESTRADIOL
     Indication: Menopause
     Dosage: 100.0UG/INHAL UNKNOWN
     Route: 065
     Dates: start: 20191010
  8. EMGALITY [Suspect]
     Active Substance: GALCANEZUMAB-GNLM
     Indication: Migraine
     Route: 065
     Dates: start: 202106
  9. ONDANSETRON [Suspect]
     Active Substance: ONDANSETRON
     Indication: Migraine
     Dosage: F8 MG, AS REQUIRED
     Route: 065
     Dates: start: 2019
  10. ONDANSETRON [Suspect]
     Active Substance: ONDANSETRON
     Indication: Irritable bowel syndrome
     Dosage: F8 MG, AS REQUIRED
     Route: 065
     Dates: start: 2019
  11. PREGABALIN [Suspect]
     Active Substance: PREGABALIN
     Indication: Meralgia paraesthetica
     Dosage: 75 MG, 2 TIMES NIGHTLY
     Route: 065
     Dates: start: 202107
  12. PROMETRIUM [Suspect]
     Active Substance: PROGESTERONE
     Indication: Menopause
     Dosage: 100MILLIGRAM PER DAY
     Route: 067
     Dates: start: 20191028
  13. RABEPRAZOLE [Suspect]
     Active Substance: RABEPRAZOLE
     Indication: Gastrooesophageal reflux disease
     Dosage: 1/2 DAILY, ABOUT 8 YEARS
     Route: 065
  14. TAPENTADOL [Suspect]
     Active Substance: TAPENTADOL
     Indication: Migraine
     Dosage: 50 MG, AS REQUIRED
     Route: 065
     Dates: start: 2018

REACTIONS (4)
  - Migraine [Unknown]
  - Hyperhidrosis [Unknown]
  - Hot flush [Unknown]
  - Breast tenderness [Unknown]

NARRATIVE: CASE EVENT DATE: 20220101
